FAERS Safety Report 8283507-9 (Version None)
Quarter: 2012Q2

REPORT INFORMATION
  Report Type: 
  Country: None (occurrence: None)
  Receive Date: 20120413
  Receipt Date: 20120409
  Transmission Date: 20120825
  Serious: Yes (Hospitalization)
  Sender: FDA-Public Use
  Company Number: PHHY2012GB030153

PATIENT
  Age: 63 Year
  Sex: Male

DRUGS (5)
  1. RANITIDINE [Concomitant]
  2. SIMVASTATIN [Concomitant]
  3. AMLODIPINE [Concomitant]
     Indication: HYPERTENSION
  4. OMEPRAZOLE [Suspect]
     Indication: GASTROOESOPHAGEAL REFLUX DISEASE
     Dosage: 20 MG, BID
  5. OMEPRAZOLE [Suspect]
     Indication: DUODENITIS

REACTIONS (11)
  - HYPOMAGNESAEMIA [None]
  - CONVULSION [None]
  - LETHARGY [None]
  - NEUTROPHIL COUNT INCREASED [None]
  - DEHYDRATION [None]
  - ABDOMINAL PAIN [None]
  - BLOOD POTASSIUM DECREASED [None]
  - MYOCLONUS [None]
  - DIARRHOEA [None]
  - VOMITING [None]
  - ACUTE PRERENAL FAILURE [None]
